FAERS Safety Report 5017930-2 (Version None)
Quarter: 2006Q2

REPORT INFORMATION
  Report Type: 
  Country: None (occurrence: None)
  Receive Date: 20060602
  Receipt Date: 20060602
  Transmission Date: 20061013
  Serious: Yes (Hospitalization)
  Sender: FDA-Public Use
  Company Number: None

PATIENT
  Age: 24 Year
  Sex: Female
  Weight: 53.5244 kg

DRUGS (1)
  1. NUVARING [Suspect]
     Indication: ENDOMETRIOSIS
     Dosage: 0.120 MG/ 24 HR Q30 DAYS VAG
     Route: 067
     Dates: start: 20060226, end: 20060419

REACTIONS (1)
  - DEEP VEIN THROMBOSIS [None]
